FAERS Safety Report 17483857 (Version 1)
Quarter: 2020Q1

REPORT INFORMATION
  Report Type: Spontaneous
  Country: US (occurrence: US)
  Receive Date: 20200301
  Receipt Date: 20200301
  Transmission Date: 20200409
  Serious: Yes (Hospitalization)
  Sender: FDA-Public Use
  Company Number: None

PATIENT
  Age: 48 Year
  Sex: Female
  Weight: 142.65 kg

DRUGS (8)
  1. LEVOTHYRIXINE [Concomitant]
  2. LAMICTAL [Concomitant]
     Active Substance: LAMOTRIGINE
  3. REXULTI [Concomitant]
     Active Substance: BREXPIPRAZOLE
  4. TIZANIDINE. [Concomitant]
     Active Substance: TIZANIDINE
  5. BUSPAR [Concomitant]
     Active Substance: BUSPIRONE HYDROCHLORIDE
  6. DIAZEPAM. [Concomitant]
     Active Substance: DIAZEPAM
  7. TRULICITY [Suspect]
     Active Substance: DULAGLUTIDE
     Indication: DIABETES MELLITUS
     Dates: start: 20200227, end: 20200227
  8. CYMBALTA [Concomitant]
     Active Substance: DULOXETINE HYDROCHLORIDE

REACTIONS (1)
  - Pancreatitis [None]

NARRATIVE: CASE EVENT DATE: 20200227
